FAERS Safety Report 4332284-2 (Version None)
Quarter: 2004Q1

REPORT INFORMATION
  Report Type: 
  Country: None (occurrence: None)
  Receive Date: 20040326
  Receipt Date: 20040119
  Transmission Date: 20041129
  Serious: No
  Sender: FDA-Public Use
  Company Number: WAES 0401USA01467

PATIENT
  Sex: 0

DRUGS (1)
  1. INVANZ [Suspect]
     Indication: SKIN INFECTION
     Dosage: IV
     Route: 042

REACTIONS (2)
  - MEDICATION ERROR [None]
  - RASH [None]
